FAERS Safety Report 9554366 (Version 1)
Quarter: 2013Q3

REPORT INFORMATION
  Report Type: Spontaneous
  Country: US (occurrence: US)
  Receive Date: 20130925
  Receipt Date: 20130925
  Transmission Date: 20140515
  Serious: Yes (Other)
  Sender: FDA-Public Use
  Company Number: US-MYLANLABS-2013S1005345

PATIENT
  Sex: Female

DRUGS (4)
  1. FUROSEMIDE TABLETS, USP [Suspect]
     Indication: FLUID RETENTION
     Route: 048
     Dates: start: 2012, end: 2012
  2. NEXIUM [Concomitant]
     Route: 048
  3. FOLIC ACID [Concomitant]
     Route: 048
  4. ASA [Concomitant]
     Route: 048

REACTIONS (1)
  - Deafness bilateral [Not Recovered/Not Resolved]
